FAERS Safety Report 10006461 (Version 1)
Quarter: 2014Q1

REPORT INFORMATION
  Report Type: Spontaneous
  Country: US (occurrence: None)
  Receive Date: 20140312
  Receipt Date: 20140312
  Transmission Date: 20141002
  Serious: Yes (Life-Threatening, Hospitalization, Congenital Anomaly)
  Sender: FDA-Public Use
  Company Number: None

PATIENT
  Age: 24 Year
  Sex: Female
  Weight: 42 kg

DRUGS (1)
  1. MIRENA [Suspect]

REACTIONS (3)
  - Ectopic pregnancy [None]
  - Pregnancy with contraceptive device [None]
  - Exposure during pregnancy [None]
